FAERS Safety Report 19110038 (Version 1)
Quarter: 2021Q2

REPORT INFORMATION
  Report Type: Spontaneous
  Country: US (occurrence: US)
  Receive Date: 20210409
  Receipt Date: 20210409
  Transmission Date: 20210717
  Serious: No
  Sender: FDA-Public Use
  Company Number: US-GILEAD-2021-0524388

PATIENT
  Age: 59 Year
  Sex: Female

DRUGS (10)
  1. LUMIFY [Concomitant]
     Active Substance: BRIMONIDINE TARTRATE
  2. TEMAZEPAM. [Concomitant]
     Active Substance: TEMAZEPAM
  3. NAPROXEN. [Concomitant]
     Active Substance: NAPROXEN
  4. LORATADINE. [Concomitant]
     Active Substance: LORATADINE
  5. ACYCLOVENIR [Concomitant]
  6. METOPROLOL TARTRATE. [Concomitant]
     Active Substance: METOPROLOL TARTRATE
  7. FLUTICASONE PROPIONATE. [Concomitant]
     Active Substance: FLUTICASONE PROPIONATE
  8. AMLODIPINE BESILATE [Concomitant]
     Active Substance: AMLODIPINE BESYLATE
  9. SOFOSBUVIR;VELPATASVIR [Suspect]
     Active Substance: SOFOSBUVIR\VELPATASVIR
     Indication: CHRONIC HEPATITIS C
     Dosage: 1 DOSAGE FORM, QD
     Route: 048
  10. HYDROCHLOROTHIAZIDE. [Concomitant]
     Active Substance: HYDROCHLOROTHIAZIDE

REACTIONS (2)
  - Chromaturia [Unknown]
  - Fatigue [Unknown]
